FAERS Safety Report 21361445 (Version 1)
Quarter: 2022Q3

REPORT INFORMATION
  Report Type: Spontaneous
  Country: GB (occurrence: GB)
  Receive Date: 20220921
  Receipt Date: 20220921
  Transmission Date: 20221026
  Serious: Yes (Other)
  Sender: FDA-Public Use
  Company Number: None

PATIENT
  Age: 82 Year
  Sex: Female

DRUGS (9)
  1. MOLNUPIRAVIR [Suspect]
     Active Substance: MOLNUPIRAVIR
     Indication: COVID-19
     Dates: start: 20220806, end: 20220811
  2. COCODAMOL [Concomitant]
     Active Substance: ACETAMINOPHEN\CODEINE PHOSPHATE
     Dosage: 30/500
  3. APIXABAN [Concomitant]
     Active Substance: APIXABAN
     Indication: Atrial fibrillation
  4. PREDNISOLONE [Concomitant]
     Active Substance: PREDNISOLONE
  5. BISOPROLOL [Concomitant]
     Active Substance: BISOPROLOL
  6. EDOXABAN [Concomitant]
     Active Substance: EDOXABAN
  7. MIRTAZAPINE [Concomitant]
     Active Substance: MIRTAZAPINE
  8. OLANZAPINE [Concomitant]
     Active Substance: OLANZAPINE
     Dosage: 5/7.5
  9. FENTANYL [Concomitant]
     Active Substance: FENTANYL
     Dosage: 50 PATCH

REACTIONS (2)
  - Chest wall haematoma [Recovering/Resolving]
  - Contusion [Recovering/Resolving]

NARRATIVE: CASE EVENT DATE: 20220810
